FAERS Safety Report 5655435-6 (Version None)
Quarter: 2008Q1

REPORT INFORMATION
  Report Type: 
  Country: None (occurrence: None)
  Receive Date: 20080307
  Receipt Date: 20080228
  Transmission Date: 20080703
  Serious: Yes (Other)
  Sender: FDA-Public Use
  Company Number: US-BRISTOL-MYERS SQUIBB COMPANY-14095624

PATIENT
  Age: 52 Year
  Sex: Female
  Weight: 61 kg

DRUGS (4)
  1. ORENCIA [Suspect]
     Indication: RHEUMATOID ARTHRITIS
     Dosage: 1 DOSE
     Route: 042
     Dates: start: 20080204
  2. METHOTREXATE [Concomitant]
  3. FOLIC ACID [Concomitant]
  4. FOSAMAX [Concomitant]

REACTIONS (2)
  - BLOOD PRESSURE INCREASED [None]
  - DIASTOLIC DYSFUNCTION [None]
